FAERS Safety Report 4761960-2 (Version None)
Quarter: 2005Q3

REPORT INFORMATION
  Report Type: 
  Country: None (occurrence: None)
  Receive Date: 20050831
  Receipt Date: 20050525
  Transmission Date: 20060218
  Serious: No
  Sender: FDA-Public Use
  Company Number: PHEH2005US06107

PATIENT
  Age: 80 Year
  Sex: Male

DRUGS (9)
  1. ENABLEX [Suspect]
     Dosage: 7.5MG, QD
     Dates: start: 20050506, end: 20050518
  2. LEXAPRO [Concomitant]
  3. ARICEPT [Concomitant]
  4. AGGRENOX [Concomitant]
  5. PRINZIDE [Concomitant]
  6. ANTADINE (AMANTADNE HYDROCHLORIDE) [Concomitant]
  7. PROTONIX [Concomitant]
  8. SINEMET [Concomitant]
  9. CARDIZEM CD [Concomitant]

REACTIONS (1)
  - CONFUSIONAL STATE [None]
